FAERS Safety Report 23596109 (Version 3)
Quarter: 2024Q1

REPORT INFORMATION
  Report Type: Spontaneous
  Country: GB (occurrence: GB)
  Receive Date: 20240305
  Receipt Date: 20240313
  Transmission Date: 20240410
  Serious: Yes (Other)
  Sender: FDA-Public Use
  Company Number: GB-ADVANZ PHARMA-202402001386

PATIENT
  Age: 78 Year
  Sex: Female

DRUGS (2)
  1. METHYLPREDNISOLONE SODIUM SUCCINATE [Suspect]
     Active Substance: METHYLPREDNISOLONE SODIUM SUCCINATE
     Indication: Giant cell arteritis
     Dosage: 1 G, SINGLE
     Route: 042
  2. PREDNISOLONE [Suspect]
     Active Substance: PREDNISOLONE
     Indication: Giant cell arteritis
     Dosage: 60 MG, 1X/DAY

REACTIONS (5)
  - Immune thrombocytopenia [Unknown]
  - Petechiae [Unknown]
  - Ecchymosis [Unknown]
  - Off label use [Unknown]
  - Drug effective for unapproved indication [Unknown]
